FAERS Safety Report 14893089 (Version 1)
Quarter: 2018Q2

REPORT INFORMATION
  Report Type: Spontaneous
  Country: DE (occurrence: DE)
  Receive Date: 20180514
  Receipt Date: 20180514
  Transmission Date: 20180711
  Serious: Yes (Hospitalization)
  Sender: FDA-Public Use
  Company Number: DE-ROCHE-2123447

PATIENT
  Age: 76 Year
  Sex: Male
  Weight: 66.8 kg

DRUGS (11)
  1. RAPAMUNE [Suspect]
     Active Substance: SIROLIMUS
     Indication: PRODUCT USED FOR UNKNOWN INDICATION
     Route: 048
  2. KALIUM VERLA [Concomitant]
     Active Substance: POTASSIUM CITRATE
     Route: 048
  3. TARDYFERON (GERMANY) [Concomitant]
     Route: 048
  4. VANCOMYCIN [Concomitant]
     Active Substance: VANCOMYCIN
     Route: 048
  5. CELLCEPT [Suspect]
     Active Substance: MYCOPHENOLATE MOFETIL\MYCOPHENOLATE MOFETIL HYDROCHLORIDE
     Indication: PRODUCT USED FOR UNKNOWN INDICATION
     Route: 048
  6. METOPROLOL. [Concomitant]
     Active Substance: METOPROLOL
     Route: 048
  7. APIXABAN [Concomitant]
     Active Substance: APIXABAN
     Route: 048
  8. TORASEMID [Concomitant]
     Active Substance: TORSEMIDE
     Route: 048
  9. AUGENTROPFEN [Concomitant]
     Route: 031
  10. AMIODARON [Concomitant]
     Active Substance: AMIODARONE
     Route: 048
  11. EINSALPHA [Concomitant]
     Route: 048

REACTIONS (9)
  - Dehydration [Unknown]
  - Acute kidney injury [Unknown]
  - Localised infection [Unknown]
  - Oedema peripheral [Unknown]
  - General physical health deterioration [Unknown]
  - Electrolyte imbalance [Unknown]
  - Arrhythmia [Unknown]
  - Diarrhoea [Unknown]
  - Anuria [Unknown]
